FAERS Safety Report 5604865-7 (Version None)
Quarter: 2008Q1

REPORT INFORMATION
  Report Type: 
  Country: None (occurrence: None)
  Receive Date: 20080128
  Receipt Date: 20071206
  Transmission Date: 20080703
  Serious: Yes (Hospitalization, Other)
  Sender: FDA-Public Use
  Company Number: US-PURDUE-USA_2007_0030820

PATIENT
  Sex: Female

DRUGS (20)
  1. OXYCONTIN [Suspect]
     Indication: BACK PAIN
     Dosage: UNK, SEE TEXT
     Dates: start: 19981019, end: 20011207
  2. KLONOPIN [Concomitant]
  3. ZOLOFT [Concomitant]
  4. RESTORIL [Concomitant]
  5. COLACE [Concomitant]
  6. INSULIN [Concomitant]
  7. LOTRIMIN [Concomitant]
  8. DIABETA [Concomitant]
  9. MICRONASE [Concomitant]
  10. GLYBURIDE [Concomitant]
  11. PROMETHAZINE HCL [Concomitant]
  12. TYLENOL [Concomitant]
  13. REMERON [Concomitant]
  14. PEPCID [Concomitant]
  15. AMARYL [Concomitant]
  16. VITAMIN CAP [Concomitant]
  17. ATIVAN [Concomitant]
  18. MAALOX [Concomitant]
  19. NORTRIPTYLINE [Concomitant]
  20. ORUDIS [Concomitant]

REACTIONS (4)
  - ACTIVITIES OF DAILY LIVING IMPAIRED [None]
  - DRUG ABUSE [None]
  - DRUG DEPENDENCE [None]
  - HOSPITALISATION [None]
